FAERS Safety Report 5721653-1 (Version None)
Quarter: 2008Q2

REPORT INFORMATION
  Report Type: 
  Country: None (occurrence: None)
  Receive Date: 20080429
  Receipt Date: 20080422
  Transmission Date: 20081010
  Serious: Yes (Hospitalization, Other)
  Sender: FDA-Public Use
  Company Number: PHRM2008FR01359

PATIENT
  Age: 53 Year
  Sex: Male

DRUGS (3)
  1. LAMICTAL [Concomitant]
     Route: 048
  2. GABITRIL [Concomitant]
     Route: 048
  3. TEGRETOL [Suspect]
     Indication: EPILEPSY
     Route: 048
     Dates: end: 20080323

REACTIONS (23)
  - ANTICONVULSANT DRUG LEVEL INCREASED [None]
  - ASTHENIA [None]
  - BALANCE DISORDER [None]
  - BLOOD CREATININE INCREASED [None]
  - BLOOD FIBRINOGEN INCREASED [None]
  - BLOOD UREA INCREASED [None]
  - BUNDLE BRANCH BLOCK LEFT [None]
  - C-REACTIVE PROTEIN INCREASED [None]
  - CEREBELLAR SYNDROME [None]
  - CREATININE RENAL CLEARANCE DECREASED [None]
  - DIZZINESS [None]
  - DYSARTHRIA [None]
  - DYSKINESIA [None]
  - DYSPNOEA [None]
  - FATIGUE [None]
  - HAEMOPTYSIS [None]
  - INFLAMMATION [None]
  - INTERSTITIAL LUNG DISEASE [None]
  - NEUTROPHIL COUNT INCREASED [None]
  - OVERDOSE [None]
  - PSYCHOMOTOR SKILLS IMPAIRED [None]
  - RENAL FAILURE [None]
  - SINUS TACHYCARDIA [None]
